FAERS Safety Report 16287103 (Version 2)
Quarter: 2019Q2

REPORT INFORMATION
  Report Type: Spontaneous
  Country: FR (occurrence: FR)
  Receive Date: 20190508
  Receipt Date: 20190521
  Transmission Date: 20190711
  Serious: Yes (Hospitalization)
  Sender: FDA-Public Use
  Company Number: FR-BRISTOL-MYERS SQUIBB COMPANY-BMS-2019-042891

PATIENT
  Age: 71 Year
  Sex: Female
  Weight: 80 kg

DRUGS (8)
  1. ALLOPURINOL ARROW [Suspect]
     Active Substance: ALLOPURINOL
     Indication: PRODUCT USED FOR UNKNOWN INDICATION
     Dosage: 1 DOSAGE FORM= 1 UNIT NOS, QD
     Route: 048
     Dates: start: 20190318, end: 20190322
  2. ACIDE FOLIQUE [Suspect]
     Active Substance: FOLIC ACID
     Indication: VITAMIN SUPPLEMENTATION
     Dosage: 1 DOSAGE FORM=2 UNIT NOS, QD
     Route: 048
     Dates: start: 20190318, end: 20190328
  3. CEFTRIAXONE. [Suspect]
     Active Substance: CEFTRIAXONE
     Indication: PYREXIA
     Dosage: 1 DOSAGE FORM= 1 UNIT NOS, QD
     Route: 041
     Dates: start: 20190317, end: 20190325
  4. LANSOYL [Suspect]
     Active Substance: MINERAL OIL
     Indication: CONSTIPATION
     Dosage: 1 DOSAGE FORM=3 UNIT NOS, QD
     Route: 048
     Dates: start: 20190318, end: 20190327
  5. LEVOTHYROX [Concomitant]
     Active Substance: LEVOTHYROXINE
     Indication: PRODUCT USED FOR UNKNOWN INDICATION
     Route: 065
  6. OXYNORM [Suspect]
     Active Substance: OXYCODONE HYDROCHLORIDE
     Indication: PAIN
     Dosage: 20 MILLIGRAM, QD
     Route: 041
     Dates: start: 20190318, end: 20190322
  7. MOVICOL PLAIN [Suspect]
     Active Substance: POLYETHYLENE GLYCOL 3350\POTASSIUM CHLORIDE\SODIUM BICARBONATE\SODIUM CHLORIDE
     Indication: CONSTIPATION
     Dosage: 1 DOSAGE FORM=2 UNIT NOS, QD
     Route: 048
     Dates: start: 20190320, end: 20190326
  8. HYDREA [Suspect]
     Active Substance: HYDROXYUREA
     Indication: ACUTE MYELOID LEUKAEMIA
     Dosage: 1 DOSAGE FORM= 2 UNIT NOS, QD
     Route: 048
     Dates: start: 20190315, end: 20190322

REACTIONS (2)
  - Product use in unapproved indication [Unknown]
  - Rash [Recovering/Resolving]

NARRATIVE: CASE EVENT DATE: 20190322
